FAERS Safety Report 26177369 (Version 1)
Quarter: 2025Q4

REPORT INFORMATION
  Report Type: Report from Study
  Country: US (occurrence: US)
  Receive Date: 20251219
  Receipt Date: 20251219
  Transmission Date: 20260118
  Serious: Yes (Other)
  Sender: ACADIA PHARMACEUTICALS
  Company Number: US-ACADIA PHARMACEUTICALS INC.-ACA-2025-PIM-013236

PATIENT
  Sex: Male

DRUGS (11)
  1. NUPLAZID [Suspect]
     Active Substance: PIMAVANSERIN TARTRATE
     Indication: Parkinson^s disease
     Dosage: 34 MILLIGRAM, QD (AT BEDTIME)
     Route: 048
     Dates: start: 20250812
  2. CYANOCOBALAMIN [Concomitant]
     Active Substance: CYANOCOBALAMIN
  3. CHOLECALCIFEROL [Concomitant]
     Active Substance: CHOLECALCIFEROL
  4. QUETIAPINE [Concomitant]
     Active Substance: QUETIAPINE
  5. ALFUZOSIN [Concomitant]
     Active Substance: ALFUZOSIN
     Dosage: ER
  6. AMANTADINE [Concomitant]
     Active Substance: AMANTADINE
  7. RYTARY [Concomitant]
     Active Substance: CARBIDOPA\LEVODOPA
     Dosage: 23.75-95 MG ER
  8. GEMTESA [Concomitant]
     Active Substance: VIBEGRON
  9. ELIQUIS [Concomitant]
     Active Substance: APIXABAN
  10. FOSFOMYCIN [Concomitant]
     Active Substance: FOSFOMYCIN
  11. DONEPEZIL [Concomitant]
     Active Substance: DONEPEZIL

REACTIONS (2)
  - Hallucination [Not Recovered/Not Resolved]
  - Drug ineffective [Unknown]
